FAERS Safety Report 5446966-2 (Version None)
Quarter: 2007Q3

REPORT INFORMATION
  Report Type: 
  Country: None (occurrence: None)
  Receive Date: 20070813
  Receipt Date: 20060623
  Transmission Date: 20080115
  Serious: No
  Sender: FDA-Public Use
  Company Number: 20063066

PATIENT
  Sex: Female

DRUGS (6)
  1. LIORESAL [Suspect]
     Indication: MUSCLE SPASTICITY
     Dosage: 90.16 MCG, DAILY, INTRATHECAL
     Route: 037
  2. BACLOFEN [Concomitant]
  3. DEPAKOTE [Concomitant]
  4. EFFEXOR [Concomitant]
  5. TYLENOL (CAPLET) [Concomitant]
  6. DARVOCET [Concomitant]

REACTIONS (3)
  - DRUG INEFFECTIVE [None]
  - HYPOTONIA [None]
  - PAIN [None]
